FAERS Safety Report 9463696 (Version 1)
Quarter: 2013Q3

REPORT INFORMATION
  Report Type: Report from Study
  Country: MX (occurrence: MX)
  Receive Date: 20130819
  Receipt Date: 20130819
  Transmission Date: 20140515
  Serious: Yes (Other)
  Sender: FDA-Public Use
  Company Number: PHHY2013MX088965

PATIENT
  Age: 73 Year
  Sex: Female

DRUGS (6)
  1. ONBREZ [Suspect]
     Indication: INCREASED UPPER AIRWAY SECRETION
     Dosage: 1 DF, QD
     Dates: start: 201305
  2. ONBREZ [Suspect]
     Indication: OFF LABEL USE
  3. LOBIVON [Concomitant]
     Indication: TACHYCARDIA
     Dosage: UNK
  4. ROSUVASTATINE [Concomitant]
     Indication: BLOOD CHOLESTEROL
     Dosage: 1 DF, Q72H
  5. ACETYLSALICYLIC ACID [Concomitant]
     Indication: INFARCTION
     Dosage: 1 DF, Q72H
  6. RIVOTRIL [Concomitant]
     Indication: HYPERTENSION
     Dosage: 5 DF, QD

REACTIONS (3)
  - Blood pressure increased [Not Recovered/Not Resolved]
  - Stress [Not Recovered/Not Resolved]
  - Dizziness [Not Recovered/Not Resolved]
